FAERS Safety Report 10777820 (Version 1)
Quarter: 2015Q1

REPORT INFORMATION
  Report Type: Spontaneous
  Country: US (occurrence: US)
  Receive Date: 20150209
  Receipt Date: 20150209
  Transmission Date: 20150721
  Serious: Yes (Other)
  Sender: FDA-Public Use
  Company Number: US-TEVA-539209USA

PATIENT
  Sex: Female

DRUGS (1)
  1. COPAXONE [Suspect]
     Active Substance: GLATIRAMER ACETATE
     Indication: MULTIPLE SCLEROSIS
     Dosage: DOSE AND FREQUEMCY NOT PROVIDED
     Dates: start: 2013

REACTIONS (4)
  - Mental impairment [Unknown]
  - Fatigue [Unknown]
  - Memory impairment [Unknown]
  - Visual impairment [Unknown]
